FAERS Safety Report 12397939 (Version 1)
Quarter: 2016Q2

REPORT INFORMATION
  Report Type: Spontaneous
  Country: DK (occurrence: DK)
  Receive Date: 20160524
  Receipt Date: 20160524
  Transmission Date: 20160815
  Serious: Yes (Congenital Anomaly)
  Sender: FDA-Public Use
  Company Number: DK-ACTAVIS-2016-10662

PATIENT
  Age: 19 Month
  Sex: Male

DRUGS (2)
  1. TOLFENAMIC ACID [Concomitant]
     Active Substance: TOLFENAMIC ACID
     Indication: PRODUCT USED FOR UNKNOWN INDICATION
     Dosage: UNKNOWN
     Route: 064
  2. PROPYLTHIOURACIL (UNKNOWN) [Suspect]
     Active Substance: PROPYLTHIOURACIL
     Indication: HYPERTHYROIDISM
     Dosage: UNKNOWN
     Route: 064

REACTIONS (2)
  - Preauricular cyst [Unknown]
  - Foetal exposure during pregnancy [Unknown]
